FAERS Safety Report 23813054 (Version 1)
Quarter: 2024Q2

REPORT INFORMATION
  Report Type: Spontaneous
  Country: US (occurrence: US)
  Receive Date: 20240503
  Receipt Date: 20240503
  Transmission Date: 20240716
  Serious: No
  Sender: FDA-Public Use
  Company Number: US-AMNEAL PHARMACEUTICALS-2023-AMRX-01225

PATIENT
  Sex: Male
  Weight: 8.481 kg

DRUGS (1)
  1. VIGABATRIN [Suspect]
     Active Substance: VIGABATRIN
     Indication: Product used for unknown indication
     Dosage: 15 ML, 2 TIMES PER DAY
     Route: 048

REACTIONS (1)
  - Insomnia [Not Recovered/Not Resolved]
